FAERS Safety Report 7642405-1 (Version None)
Quarter: 2011Q3

REPORT INFORMATION
  Report Type: 
  Country: None (occurrence: None)
  Receive Date: 20110728
  Receipt Date: 20100729
  Transmission Date: 20111222
  Serious: No
  Sender: FDA-Public Use
  Company Number: US-MYLANLABS-2010S1014014

PATIENT
  Age: 76 Year
  Sex: Male
  Weight: 68.04 kg

DRUGS (6)
  1. XANAX [Concomitant]
  2. COUMADIN [Concomitant]
  3. PREDNISONE [Concomitant]
  4. METOPROLOL TARTRATE [Concomitant]
  5. LEVOTHYROXINE SODIUM [Suspect]
     Indication: HYPOTHYROIDISM
     Route: 048
     Dates: start: 20100430, end: 20100701
  6. CARDIZEM [Concomitant]

REACTIONS (4)
  - PRURITUS [None]
  - RASH [None]
  - HYPERSENSITIVITY [None]
  - PAIN [None]
